FAERS Safety Report 4496542-3 (Version None)
Quarter: 2004Q4

REPORT INFORMATION
  Report Type: 
  Country: None (occurrence: None)
  Receive Date: 20041109
  Receipt Date: 20041102
  Transmission Date: 20050328
  Serious: Yes (Life-Threatening, Hospitalization, Disabling)
  Sender: FDA-Public Use
  Company Number: CH-BRISTOL-MYERS SQUIBB COMPANY-12754677

PATIENT
  Age: 65 Year
  Sex: Female
  Weight: 120 kg

DRUGS (7)
  1. GLUCOPHAGE [Suspect]
     Indication: DIABETES MELLITUS INSULIN-DEPENDENT
     Route: 048
     Dates: start: 20040601, end: 20040803
  2. COAPROVEL TABS 300MG/12.5MG [Suspect]
     Indication: ESSENTIAL HYPERTENSION
     Dosage: DOSAGE FORM = 1 TABLET = 300MG/12.5MG
     Route: 048
     Dates: start: 20040601
  3. CIPROXIN [Suspect]
     Indication: URINARY TRACT INFECTION
     Route: 048
     Dates: start: 20040802, end: 20040803
  4. ASPIRIN [Concomitant]
     Indication: CEREBROVASCULAR ACCIDENT
     Route: 048
     Dates: start: 20040529
  5. NORVASC [Concomitant]
     Indication: ESSENTIAL HYPERTENSION
     Route: 048
  6. ATORVASTATIN CALCIUM [Concomitant]
     Indication: HYPERLIPIDAEMIA
     Route: 048
     Dates: start: 20040803
  7. IRBESARTAN [Concomitant]
     Indication: ESSENTIAL HYPERTENSION
     Dates: end: 20040601

REACTIONS (17)
  - ARTERIAL DISORDER [None]
  - BREATH ODOUR [None]
  - BRONCHIAL OBSTRUCTION [None]
  - CARDIAC MURMUR [None]
  - DIALYSIS [None]
  - DIZZINESS [None]
  - DYSPHAGIA [None]
  - DYSPNOEA [None]
  - HYPERKALAEMIA [None]
  - IMMOBILE [None]
  - INFLAMMATION [None]
  - LACTIC ACIDOSIS [None]
  - NECROSIS [None]
  - RENAL IMPAIRMENT [None]
  - TACHYPNOEA [None]
  - URINARY TRACT INFECTION [None]
  - VOMITING [None]
